FAERS Safety Report 6271884-X (Version None)
Quarter: 2009Q3

REPORT INFORMATION
  Report Type: 
  Country: None (occurrence: None)
  Receive Date: 20090717
  Receipt Date: 20090714
  Transmission Date: 20100115
  Serious: Yes (Death)
  Sender: FDA-Public Use
  Company Number: PHHY2009CA23451

PATIENT
  Sex: Female

DRUGS (9)
  1. CLOZARIL [Suspect]
     Indication: SCHIZOPHRENIA
     Dosage: 350 MG DAILY
     Route: 048
     Dates: start: 20030917, end: 20090601
  2. PAXIL [Concomitant]
  3. DDAVP [Concomitant]
  4. PREVACID [Concomitant]
  5. LORAZEPAM [Concomitant]
     Dosage: UNK
  6. SYNTHROID [Concomitant]
  7. HYDROCHLOROTHIAZIDE [Concomitant]
  8. IRON [Concomitant]
  9. GLUCONIC ACID [Concomitant]

REACTIONS (1)
  - DEATH [None]
